FAERS Safety Report 8791619 (Version 1)
Quarter: 2012Q4

REPORT INFORMATION
  Report Type: 
  Country: MY (occurrence: MY)
  Receive Date: 20120918
  Receipt Date: 20120918
  Transmission Date: 20130627
  Serious: Yes (Other)
  Sender: FDA-Public Use
  Company Number: MY-PFIZER INC-2012226169

PATIENT
  Age: 23 Year
  Sex: Female

DRUGS (3)
  1. SALAZOPYRINE [Suspect]
     Indication: RHEUMATOID ARTHRITIS
     Dosage: 1 g, 1x/day
     Route: 048
     Dates: start: 2011
  2. PREDNISOLONE [Concomitant]
     Dosage: UNK
  3. DICLOFENAC [Concomitant]
     Dosage: UNK

REACTIONS (2)
  - Photosensitivity reaction [Recovered/Resolved]
  - Urticaria [Recovered/Resolved]
